FAERS Safety Report 4580981-6 (Version None)
Quarter: 2005Q1

REPORT INFORMATION
  Report Type: 
  Country: None (occurrence: None)
  Receive Date: 20050214
  Receipt Date: 20040712
  Transmission Date: 20050727
  Serious: No
  Sender: FDA-Public Use
  Company Number: US-GLAXOSMITHKLINE-A0517826A

PATIENT
  Age: 61 Year
  Sex: Female

DRUGS (6)
  1. LAMICTAL [Suspect]
     Indication: DEPRESSION
     Dosage: 25MG PER DAY
     Route: 048
     Dates: start: 20040630
  2. PROZAC [Concomitant]
  3. SYNTHROID [Concomitant]
  4. PREVACID [Concomitant]
  5. MEVACOR [Concomitant]
  6. NEURONTIN [Concomitant]

REACTIONS (1)
  - RASH [None]
